FAERS Safety Report 25595752 (Version 1)
Quarter: 2025Q3

REPORT INFORMATION
  Report Type: Spontaneous
  Country: US (occurrence: None)
  Receive Date: 20250722
  Receipt Date: 20250722
  Transmission Date: 20251021
  Serious: Yes (Hospitalization)
  Sender: FDA-CTU
  Company Number: None

PATIENT
  Sex: Male

DRUGS (5)
  1. XDEMVY [Suspect]
     Active Substance: LOTILANER
     Dosage: FREQUENCY : TWICE A DAY;?
     Route: 047
  2. AMIODARONE [Concomitant]
     Active Substance: AMIODARONE
  3. ELIQUIS [Concomitant]
     Active Substance: APIXABAN
  4. FARXIGA TAB 5MG [Concomitant]
  5. METOPROL TAR TAB 25MG [Concomitant]

REACTIONS (3)
  - Cardiac failure congestive [None]
  - Eyelid margin crusting [None]
  - Pruritus [None]
